FAERS Safety Report 21917952 (Version 7)
Quarter: 2024Q1

REPORT INFORMATION
  Report Type: Spontaneous
  Country: JP (occurrence: JP)
  Receive Date: 20230127
  Receipt Date: 20240221
  Transmission Date: 20240410
  Serious: Yes (Death, Hospitalization, Other)
  Sender: FDA-Public Use
  Company Number: JP-MSD-M2022-48081

PATIENT
  Age: 58 Year
  Sex: Female

DRUGS (4)
  1. KEYTRUDA [Suspect]
     Active Substance: PEMBROLIZUMAB
     Indication: Endometrial adenocarcinoma
     Dosage: 200 MILLIGRAM, Q3W
     Route: 041
     Dates: start: 20221108, end: 202302
  2. LENVATINIB MESYLATE [Suspect]
     Active Substance: LENVATINIB MESYLATE
     Indication: Endometrial adenocarcinoma
     Dosage: 20 MILLIGRAM, QD
     Route: 048
     Dates: start: 20220803
  3. LENVATINIB MESYLATE [Suspect]
     Active Substance: LENVATINIB MESYLATE
     Dosage: 14 MILLIGRAM, QD
     Route: 048
  4. LENVATINIB MESYLATE [Suspect]
     Active Substance: LENVATINIB MESYLATE
     Dosage: 10 MILLIGRAM, QD
     Route: 048

REACTIONS (19)
  - Traumatic intracranial haemorrhage [Fatal]
  - Altered state of consciousness [Unknown]
  - Deep vein thrombosis [Unknown]
  - Fall [Unknown]
  - Subarachnoid haemorrhage [Unknown]
  - Subdural haematoma [Unknown]
  - Interstitial lung disease [Unknown]
  - Dysarthria [Unknown]
  - Contusion [Unknown]
  - General physical health deterioration [Unknown]
  - Hypertension [Unknown]
  - Pyrexia [Unknown]
  - Malaise [Unknown]
  - Stomatitis [Unknown]
  - Erythema [Unknown]
  - Rash [Unknown]
  - Anaemia [Unknown]
  - Platelet count decreased [Unknown]
  - Neutrophil count decreased [Unknown]

NARRATIVE: CASE EVENT DATE: 20221109
